FAERS Safety Report 9613596 (Version 1)
Quarter: 2013Q4

REPORT INFORMATION
  Report Type: Spontaneous
  Country: KR (occurrence: None)
  Receive Date: 20131008
  Receipt Date: 20131008
  Transmission Date: 20140711
  Serious: Yes (Other)
  Sender: FDA-Public Use
  Company Number: 2013090097

PATIENT
  Age: 57 Year
  Sex: Female

DRUGS (6)
  1. ZOLPIDEM [Suspect]
     Indication: INSOMNIA
     Dosage: STOPPED
  2. PROPYLTHIOURACIL [Concomitant]
  3. DIAZEPAM (DIAZEPAM) [Concomitant]
  4. QUETIAPINE [Concomitant]
  5. LORAZEPAM [Concomitant]
  6. ESCITALOPRAM (ESCITALOPRAM) [Concomitant]

REACTIONS (9)
  - Insomnia [None]
  - Condition aggravated [None]
  - Dysarthria [None]
  - Sleep apnoea syndrome [None]
  - Periodic limb movement disorder [None]
  - Eating disorder [None]
  - Obsessive-compulsive disorder [None]
  - Weight decreased [None]
  - Spinal column stenosis [None]
